FAERS Safety Report 20238934 (Version 2)
Quarter: 2022Q1

REPORT INFORMATION
  Report Type: Spontaneous
  Country: FR (occurrence: FR)
  Receive Date: 20211228
  Receipt Date: 20220117
  Transmission Date: 20220423
  Serious: Yes (Other)
  Sender: FDA-Public Use
  Company Number: FR-BIOGEN-2021BI01081591

PATIENT
  Sex: Female
  Weight: 53 kg

DRUGS (10)
  1. TYSABRI [Suspect]
     Active Substance: NATALIZUMAB
     Indication: Multiple sclerosis
     Route: 065
  2. TYSABRI [Suspect]
     Active Substance: NATALIZUMAB
     Route: 042
     Dates: start: 20170920, end: 20190520
  3. TYSABRI [Suspect]
     Active Substance: NATALIZUMAB
     Route: 042
     Dates: start: 20210930
  4. Femibion [Concomitant]
     Indication: Nutritional supplementation
     Route: 065
  5. MAGNESIUM LACTATE [Concomitant]
     Active Substance: MAGNESIUM LACTATE
     Indication: Product used for unknown indication
     Dosage: 2 TABLETS MORNING, 2 TABLETS EVENING (SO 4 TABLETS/D) WITH MEALS
     Route: 048
     Dates: start: 20200116
  6. ONDANSETRON [Concomitant]
     Active Substance: ONDANSETRON
     Indication: Nausea
     Dosage: 1 FILM MORNING, 1 FILM MIDDAY, 1 FILM EVENING (SO 3 FILMS/D) TO BE DISSOLVED ON THE TONGUE.
     Route: 048
     Dates: start: 20200116
  7. PHLOROGLUCINOL [Concomitant]
     Active Substance: PHLOROGLUCINOL
     Indication: Pain
     Dosage: 80 MG MORNING, 80 MG MIDDAY, 80 MG EVENING, 80 MG NIGHT (SO 320 MG/D)
     Route: 042
     Dates: start: 20200115
  8. TRAMADOL [Concomitant]
     Active Substance: TRAMADOL
     Indication: Pain
     Dosage: 50 MG MORNING, 50 MG MIDDAY, 50 MG EVENING (SO 150 MG/D)
     Route: 042
     Dates: start: 20200116
  9. THIAMINE [Concomitant]
     Active Substance: THIAMINE
     Indication: Product used for unknown indication
     Route: 048
     Dates: start: 20200116
  10. PYRIDOXINE [Concomitant]
     Active Substance: PYRIDOXINE
     Indication: Product used for unknown indication
     Dosage: 1 TABLET MORNING, 1 TABLET EVENING (SO 2 TABLETS/D)
     Route: 048
     Dates: start: 20200116

REACTIONS (3)
  - Cholestasis of pregnancy [Unknown]
  - Hyperemesis gravidarum [Unknown]
  - Maternal exposure during pregnancy [Recovered/Resolved]
